FAERS Safety Report 8501024-5 (Version None)
Quarter: 2012Q2

REPORT INFORMATION
  Report Type: 
  Country: None (occurrence: None)
  Receive Date: 20120405
  Receipt Date: 20110314
  Transmission Date: 20120825
  Serious: Yes (Other)
  Sender: FDA-Public Use
  Company Number: PHHY2011US11735

PATIENT
  Age: 75 Year
  Sex: Female
  Weight: 140 kg

DRUGS (7)
  1. NEXIUM [Concomitant]
  2. LORCET-HD [Concomitant]
  3. ADVAIR HFA [Concomitant]
  4. RECLAST [Suspect]
     Indication: OSTEOPOROSIS
     Dosage: INTRAVENOUS
     Route: 042
     Dates: start: 20110208
  5. PRAVACHOL [Concomitant]
  6. METOPROLOL TARTRATE [Concomitant]
  7. CELEXA [Concomitant]

REACTIONS (1)
  - HEADACHE [None]
